FAERS Safety Report 14892475 (Version 1)
Quarter: 2018Q2

REPORT INFORMATION
  Report Type: Report from Study
  Country: US (occurrence: US)
  Receive Date: 20180514
  Receipt Date: 20180514
  Transmission Date: 20180711
  Serious: Yes (Congenital Anomaly, Other)
  Sender: FDA-Public Use
  Company Number: US-VIIV HEALTHCARE LIMITED-US2018GSK084132

PATIENT
  Sex: Male

DRUGS (1)
  1. ABACAVIRSULPHATE+DOLUTEGRAVIR+LAMIVUDINE [Suspect]
     Active Substance: ABACAVIR SULFATE\DOLUTEGRAVIR SODIUM\LAMIVUDINE
     Indication: HIV INFECTION
     Dosage: UNK
     Route: 064

REACTIONS (6)
  - Ventricular septal defect [Unknown]
  - Talipes [Unknown]
  - Oligohydramnios [Unknown]
  - Congenital multiplex arthrogryposis [Unknown]
  - Congenital uterine anomaly [Unknown]
  - Foetal exposure during pregnancy [Unknown]
